FAERS Safety Report 5044492-6 (Version None)
Quarter: 2006Q3

REPORT INFORMATION
  Report Type: 
  Country: None (occurrence: None)
  Receive Date: 20060706
  Receipt Date: 20060630
  Transmission Date: 20061208
  Serious: Yes (Life-Threatening)
  Sender: FDA-Public Use
  Company Number: FR-GLAXOSMITHKLINE-B0429643A

PATIENT
  Age: 40 Year
  Sex: Male

DRUGS (2)
  1. AUGMENTIN '125' [Suspect]
     Dosage: 1G CUMULATIVE DOSE
     Route: 048
     Dates: start: 20060314
  2. DERINOX [Concomitant]
     Dosage: 1UNIT CUMULATIVE DOSE
     Route: 055
     Dates: start: 20060314

REACTIONS (7)
  - ANAPHYLACTIC SHOCK [None]
  - ANGIONEUROTIC OEDEMA [None]
  - COUGH [None]
  - PRURITUS [None]
  - RESPIRATORY DISORDER [None]
  - SYNCOPE [None]
  - THROAT IRRITATION [None]
